FAERS Safety Report 11334624 (Version 1)
Quarter: 2015Q3

REPORT INFORMATION
  Report Type: Spontaneous
  Country: US (occurrence: US)
  Receive Date: 20150804
  Receipt Date: 20150804
  Transmission Date: 20151125
  Serious: Yes (Death, Life-Threatening, Hospitalization)
  Sender: FDA-Public Use
  Company Number: US-SUN PHARMACEUTICAL INDUSTRIES LTD-2015US-101137

PATIENT
  Age: 42 Year
  Sex: Female

DRUGS (8)
  1. SPIRONOLACTONE. [Suspect]
     Active Substance: SPIRONOLACTONE
     Indication: HEPATIC ENCEPHALOPATHY
     Dosage: UNK
     Route: 065
  2. FOLIC ACID. [Concomitant]
     Active Substance: FOLIC ACID
     Indication: HEPATIC ENCEPHALOPATHY
     Dosage: UNK
     Route: 065
  3. FERROUS SULFATE [Concomitant]
     Active Substance: FERROUS SULFATE\FERROUS SULFATE, DRIED
     Indication: HEPATIC ENCEPHALOPATHY
     Dosage: UNK
     Route: 065
  4. THIAMINE. [Concomitant]
     Active Substance: THIAMINE
     Indication: HEPATIC ENCEPHALOPATHY
     Route: 065
  5. LACTULOSE. [Concomitant]
     Active Substance: LACTULOSE
     Indication: HEPATIC ENCEPHALOPATHY
     Dosage: UNK
     Route: 065
  6. ZINC [Concomitant]
     Active Substance: ZINC\ZINC CHLORIDE
     Indication: HEPATIC ENCEPHALOPATHY
     Dosage: UNK
     Route: 065
  7. RIFAXIMIN [Suspect]
     Active Substance: RIFAXIMIN
     Indication: HEPATIC ENCEPHALOPATHY
     Dosage: 550 MG, BID
     Route: 048
  8. FUROSEMIDE. [Concomitant]
     Active Substance: FUROSEMIDE
     Indication: HEPATIC ENCEPHALOPATHY
     Dosage: UNK
     Route: 065

REACTIONS (6)
  - Death [Fatal]
  - Stevens-Johnson syndrome [Recovering/Resolving]
  - Pyrexia [Unknown]
  - Confusional state [Unknown]
  - Toxic epidermal necrolysis [Recovering/Resolving]
  - Hypotension [Unknown]
